FAERS Safety Report 10165981 (Version 2)
Quarter: 2014Q2

REPORT INFORMATION
  Report Type: Spontaneous
  Country: US (occurrence: US)
  Receive Date: 20140511
  Receipt Date: 20140616
  Transmission Date: 20141212
  Serious: No
  Sender: FDA-Public Use
  Company Number: US-009507513-1405USA001839

PATIENT
  Age: 25 Year
  Sex: Female
  Weight: 70.3 kg

DRUGS (6)
  1. NUVARING [Suspect]
     Indication: MENSTRUAL CYCLE MANAGEMENT
     Dosage: NUVARING FOR A CONTINUOUS 4 WEEKS
     Route: 067
  2. NUVARING [Suspect]
     Dosage: CHANGED THE RING 1 WEEK EARLY (TYPICALLY WEAR 1 RING CONSISTENTLY FOR 28 DAYS WITH OUT PERIODS)
     Route: 067
     Dates: start: 201203
  3. ADDERALL TABLETS [Concomitant]
     Indication: ATTENTION DEFICIT/HYPERACTIVITY DISORDER
     Dosage: LOT NO/ EXPIRY DATE: MONTHLY FILL
     Route: 048
     Dates: start: 2007
  4. ADDERALL XR [Concomitant]
     Indication: ATTENTION DEFICIT/HYPERACTIVITY DISORDER
     Dosage: LOT NO/ EXPIRY DATE: MONTHLY RX
     Route: 048
     Dates: start: 2007
  5. ZYRTEC [Concomitant]
     Indication: HYPERSENSITIVITY
     Dosage: LOT NO/ EXPIRY DATE: MONTHLY
     Route: 048
     Dates: start: 2009
  6. LISINOPRIL [Concomitant]
     Indication: BLOOD PRESSURE INCREASED
     Dosage: LOT NO/ EXPIRY DATE:MONTHLY RX
     Route: 048
     Dates: start: 2013

REACTIONS (6)
  - Adverse drug reaction [Unknown]
  - Incorrect drug administration duration [Unknown]
  - Polymenorrhoea [Unknown]
  - Metrorrhagia [Unknown]
  - Menstruation irregular [Unknown]
  - Amenorrhoea [Recovered/Resolved]
